FAERS Safety Report 12442598 (Version 4)
Quarter: 2016Q4

REPORT INFORMATION
  Report Type: Report from Study
  Country: BE (occurrence: BE)
  Receive Date: 20160607
  Receipt Date: 20161005
  Transmission Date: 20170207
  Serious: Yes (Hospitalization, Other)
  Sender: FDA-Public Use
  Company Number: PHHY2016BE047092

PATIENT
  Age: 76 Year
  Sex: Female

DRUGS (11)
  1. PANTOCID [Concomitant]
     Indication: PRODUCT USED FOR UNKNOWN INDICATION
     Dosage: 40 OT, UNK
     Route: 065
  2. MEDROL [Concomitant]
     Active Substance: METHYLPREDNISOLONE
     Dosage: 16 OT, UNK
     Route: 065
  3. VALPROIC ACID. [Concomitant]
     Active Substance: VALPROIC ACID
     Indication: METASTASES TO CENTRAL NERVOUS SYSTEM
     Dosage: 750 MG, QD
     Route: 065
     Dates: start: 201602
  4. TRAMETINIB [Suspect]
     Active Substance: TRAMETINIB
     Indication: METASTATIC MALIGNANT MELANOMA
     Dosage: 2 MG, QD
     Route: 048
     Dates: start: 20160210, end: 201605
  5. NADROPARIN [Concomitant]
     Active Substance: NADROPARIN
     Indication: PULMONARY EMBOLISM
     Dosage: 0.6 ML, QD
     Route: 065
  6. FRAXIPARINE [Concomitant]
     Active Substance: NADROPARIN CALCIUM
     Indication: PRODUCT USED FOR UNKNOWN INDICATION
     Dosage: 0.6 MG, UNK
     Route: 065
  7. DABRAFENIB [Suspect]
     Active Substance: DABRAFENIB
     Indication: METASTATIC MALIGNANT MELANOMA
     Dosage: 150 MG, BID
     Route: 048
     Dates: start: 20160218, end: 2016
  8. DABRAFENIB [Suspect]
     Active Substance: DABRAFENIB
     Dosage: 75 MG, BID
     Route: 048
     Dates: start: 2016, end: 201605
  9. MEDROL [Concomitant]
     Active Substance: METHYLPREDNISOLONE
     Indication: PRODUCT USED FOR UNKNOWN INDICATION
     Dosage: 32 MG, UNK (DECREASING)
     Route: 065
  10. DEPAKINE [Concomitant]
     Active Substance: VALPROATE SODIUM
     Dosage: 750 OT, UNK
     Route: 065
  11. DEPAKINE [Concomitant]
     Active Substance: VALPROATE SODIUM
     Indication: PRODUCT USED FOR UNKNOWN INDICATION
     Dosage: 500 MG, UNK
     Route: 065

REACTIONS (8)
  - Hyperbilirubinaemia [Not Recovered/Not Resolved]
  - Drug intolerance [Not Recovered/Not Resolved]
  - Cholecystitis [Not Recovered/Not Resolved]
  - Hepatitis fulminant [Not Recovered/Not Resolved]
  - Fatigue [Unknown]
  - Haematoma [Unknown]
  - Transaminases increased [Unknown]
  - Pyrexia [Not Recovered/Not Resolved]

NARRATIVE: CASE EVENT DATE: 2016
